FAERS Safety Report 9093903 (Version 1)
Quarter: 2013Q1

REPORT INFORMATION
  Report Type: Spontaneous
  Country: US (occurrence: None)
  Receive Date: 20130214
  Receipt Date: 20130214
  Transmission Date: 20140127
  Serious: Yes (Hospitalization)
  Sender: FDA-Public Use
  Company Number: None

PATIENT
  Age: 3 Year
  Sex: Female
  Weight: 13.2 kg

DRUGS (1)
  1. VITAMIN D [Suspect]
     Indication: VITAMIN D DEFICIENCY
     Dosage: 60,000 IU
     Route: 048
     Dates: start: 20121103, end: 20130205

REACTIONS (7)
  - Renal failure acute [None]
  - Irritability [None]
  - Polyuria [None]
  - Polydipsia [None]
  - Pyrexia [None]
  - Vomiting [None]
  - Hypercalcaemia [None]
